FAERS Safety Report 4686486-6 (Version None)
Quarter: 2005Q2

REPORT INFORMATION
  Report Type: 
  Country: None (occurrence: None)
  Receive Date: 20050606
  Receipt Date: 20050525
  Transmission Date: 20051028
  Serious: Yes (Other)
  Sender: FDA-Public Use
  Company Number: 2005055636

PATIENT
  Age: 46 Year
  Sex: Female
  Weight: 149.2334 kg

DRUGS (8)
  1. CELEBREX [Suspect]
     Indication: PAIN IN EXTREMITY
     Dosage: SEE IMAGE
     Route: 048
     Dates: start: 20030101, end: 20040201
  2. PROZAC [Suspect]
     Indication: DEPRESSION
     Dosage: (1 IN 1 D), ORAL
     Route: 048
     Dates: start: 20020101, end: 20031101
  3. PROZAC [Suspect]
     Indication: WEIGHT DECREASED
     Dosage: (1 IN 1 D), ORAL
     Route: 048
     Dates: start: 20020101, end: 20031101
  4. HYZAAR [Suspect]
     Indication: BLOOD PRESSURE ABNORMAL
     Dates: start: 20030301
  5. MULTIVITAMINS AND IRON (MULTIVITAMINS AND IRON) [Concomitant]
     Indication: ILL-DEFINED DISORDER
  6. MINERALS NOS (MINERALS NOS) [Concomitant]
  7. DIPHENHYDRAMINE HCL [Concomitant]
  8. VITAMINS (VITAMINS) [Concomitant]

REACTIONS (24)
  - AMENORRHOEA [None]
  - ARTHROPATHY [None]
  - BLOOD CHOLESTEROL ABNORMAL [None]
  - BLOOD GLUCOSE ABNORMAL [None]
  - BLOOD IRON INCREASED [None]
  - CHILLS [None]
  - DECREASED ACTIVITY [None]
  - FATIGUE [None]
  - FEELING COLD [None]
  - FOOD CRAVING [None]
  - HYPERTENSION [None]
  - INTERVERTEBRAL DISC DEGENERATION [None]
  - JOINT INJURY [None]
  - MENOPAUSE [None]
  - MENORRHAGIA [None]
  - METRORRHAGIA [None]
  - MUSCLE SPASMS [None]
  - PAIN IN EXTREMITY [None]
  - POLYP [None]
  - PYREXIA [None]
  - REFUSAL OF TREATMENT BY PATIENT [None]
  - SLEEP DISORDER [None]
  - UTERINE LEIOMYOMA [None]
  - WEIGHT DECREASED [None]
